FAERS Safety Report 14472559 (Version 2)
Quarter: 2018Q4

REPORT INFORMATION
  Report Type: Report from Study
  Country: US (occurrence: US)
  Receive Date: 20180201
  Receipt Date: 20181016
  Transmission Date: 20190204
  Serious: Yes (Hospitalization, Other)
  Sender: FDA-Public Use
  Company Number: PHEH2018US003015

PATIENT
  Sex: Female

DRUGS (2)
  1. ENTRESTO [Suspect]
     Active Substance: SACUBITRIL\VALSARTAN
     Indication: PRODUCT USED FOR UNKNOWN INDICATION
     Dosage: 50 MG, UNK (24MG OF SACUBITRIL AND 26MG OF VALSARTAN)
     Route: 048
  2. ENTRESTO [Suspect]
     Active Substance: SACUBITRIL\VALSARTAN
     Dosage: 100 MG, UNK (49MG OF SACUBITRIL AND 51MG OF VALSARTAN)
     Route: 048

REACTIONS (7)
  - Bronchitis [Unknown]
  - Urinary incontinence [Unknown]
  - Ulcer [Unknown]
  - Urinary hesitation [Unknown]
  - Urinary tract infection [Unknown]
  - Arthralgia [Unknown]
  - Fungal infection [Unknown]
